FAERS Safety Report 9949730 (Version 1)
Quarter: 2014Q1

REPORT INFORMATION
  Report Type: Spontaneous
  Country: US (occurrence: US)
  Receive Date: 20140304
  Receipt Date: 20140304
  Transmission Date: 20141002
  Serious: No
  Sender: FDA-Public Use
  Company Number: US-PFIZER INC-2014059429

PATIENT
  Age: 71 Year
  Sex: Female

DRUGS (4)
  1. SUTENT [Suspect]
     Indication: METASTATIC RENAL CELL CARCINOMA
     Dosage: 50 MG
  2. LEVOTHYROXINE [Concomitant]
     Dosage: UNK
  3. AMLODIPINE [Concomitant]
     Indication: BLOOD PRESSURE
     Dosage: UNK
  4. IMODIUM [Concomitant]
     Dosage: UNK

REACTIONS (12)
  - Dysgeusia [Unknown]
  - Diarrhoea [Unknown]
  - Fatigue [Unknown]
  - Stomatitis [Unknown]
  - Oral pain [Unknown]
  - Oral discomfort [Unknown]
  - Decreased appetite [Unknown]
  - Dizziness [Unknown]
  - Musculoskeletal pain [Unknown]
  - Malaise [Unknown]
  - Hypotension [Unknown]
  - Urinary tract infection [Unknown]
